FAERS Safety Report 7081178-0 (Version None)
Quarter: 2010Q4

REPORT INFORMATION
  Report Type: 
  Country: None (occurrence: None)
  Receive Date: 20101103
  Receipt Date: 20101025
  Transmission Date: 20110411
  Serious: Yes (Hospitalization, Other)
  Sender: FDA-Public Use
  Company Number: FR-ABBOTT-10P-056-0681211-00

PATIENT
  Sex: Female

DRUGS (21)
  1. NORVIR [Suspect]
     Indication: HIV INFECTION
     Route: 048
     Dates: start: 20100528
  2. NORVIR [Suspect]
     Route: 048
     Dates: start: 20100719
  3. NORVIR [Suspect]
     Route: 048
     Dates: start: 20100811
  4. NORVIR [Suspect]
     Route: 048
  5. TRUVADA [Suspect]
     Indication: HIV INFECTION
     Route: 048
     Dates: start: 20100528
  6. TRUVADA [Suspect]
     Route: 048
     Dates: start: 20100719
  7. TRUVADA [Suspect]
     Route: 048
     Dates: start: 20100811
  8. TRUVADA [Suspect]
     Route: 048
  9. PREZISTA [Suspect]
     Indication: HIV INFECTION
     Route: 048
     Dates: start: 20100528
  10. PREZISTA [Suspect]
     Route: 048
     Dates: start: 20100719
  11. PREZISTA [Suspect]
     Route: 048
     Dates: start: 20100811
  12. PREZISTA [Suspect]
     Route: 048
  13. PIASCLEDINE [Concomitant]
     Indication: PRODUCT USED FOR UNKNOWN INDICATION
     Route: 048
  14. TANAKAN [Concomitant]
     Indication: PRODUCT USED FOR UNKNOWN INDICATION
     Route: 048
  15. HOMEOPATHY NOS [Concomitant]
     Indication: PRODUCT USED FOR UNKNOWN INDICATION
  16. VIDEX [Concomitant]
     Indication: PRODUCT USED FOR UNKNOWN INDICATION
     Dates: start: 20100625
  17. EPIVIR [Concomitant]
     Indication: PRODUCT USED FOR UNKNOWN INDICATION
     Dates: start: 20100625
  18. ISENTRESS [Concomitant]
     Indication: PRODUCT USED FOR UNKNOWN INDICATION
     Dates: start: 20100625
  19. ISENTRESS [Concomitant]
     Dates: start: 20100817
  20. VIREAD [Concomitant]
     Indication: PRODUCT USED FOR UNKNOWN INDICATION
     Dates: start: 20100811, end: 20100811
  21. ATAZANAVIR [Concomitant]
     Indication: PRODUCT USED FOR UNKNOWN INDICATION
     Dates: start: 20100819

REACTIONS (11)
  - ACUTE GENERALISED EXANTHEMATOUS PUSTULOSIS [None]
  - ANAPHYLACTIC SHOCK [None]
  - CASTLEMAN'S DISEASE [None]
  - GENERALISED ERYTHEMA [None]
  - PANCYTOPENIA [None]
  - PYREXIA [None]
  - RASH [None]
  - RASH GENERALISED [None]
  - RASH PAPULAR [None]
  - SKIN LESION [None]
  - SPLENOMEGALY [None]
